FAERS Safety Report 6498873-4 (Version None)
Quarter: 2009Q4

REPORT INFORMATION
  Report Type: 
  Country: None (occurrence: None)
  Receive Date: 20091215
  Receipt Date: 20091214
  Transmission Date: 20100525
  Serious: Yes (Death)
  Sender: FDA-Public Use
  Company Number: US-B.I. PHARMACEUTICALS,INC./RIDGEFIELD-2009-BP-14321BP

PATIENT
  Sex: Male

DRUGS (3)
  1. AGGRENOX [Suspect]
     Indication: TRANSIENT ISCHAEMIC ATTACK
     Route: 048
     Dates: start: 20040101
  2. ACUVAIL [Concomitant]
     Indication: CATARACT
     Route: 031
     Dates: start: 20091116
  3. CALCIUM CITRATE [Concomitant]
     Route: 048

REACTIONS (2)
  - EPISTAXIS [None]
  - HAEMORRHAGIC STROKE [None]
